FAERS Safety Report 5892982-6 (Version None)
Quarter: 2008Q3

REPORT INFORMATION
  Report Type: 
  Country: None (occurrence: None)
  Receive Date: 20080923
  Receipt Date: 20080731
  Transmission Date: 20090109
  Serious: No
  Sender: FDA-Public Use
  Company Number: US-ASTRAZENECA-2007UW15363

PATIENT
  Sex: Female
  Weight: 80.7 kg

DRUGS (11)
  1. SEROQUEL [Suspect]
     Indication: BIPOLAR DISORDER
     Route: 048
     Dates: start: 20070203
  2. SEROQUEL [Suspect]
     Indication: SLEEP DISORDER
     Route: 048
     Dates: start: 20070203
  3. DEPAKOTE [Suspect]
     Indication: BIPOLAR DISORDER
     Dosage: 1500MG
     Dates: start: 20070202, end: 20070401
  4. TRICOR [Concomitant]
  5. ZETIA [Concomitant]
  6. TOPAMAX [Concomitant]
  7. AMACOR [Concomitant]
  8. GABAPENTIN [Concomitant]
  9. VITAMIN TAB [Concomitant]
  10. OMEPRAZOLE MAGNESIUM [Concomitant]
     Indication: GASTROOESOPHAGEAL REFLUX DISEASE
     Dates: start: 20080401
  11. LOVASTATIN [Concomitant]
     Indication: BLOOD CHOLESTEROL
     Route: 048

REACTIONS (21)
  - ABDOMINAL DISTENSION [None]
  - ABDOMINAL PAIN [None]
  - ALOPECIA [None]
  - BLOOD CHOLESTEROL INCREASED [None]
  - BLOOD TRIGLYCERIDES INCREASED [None]
  - BREAST SWELLING [None]
  - CARPAL TUNNEL SYNDROME [None]
  - CHEST PAIN [None]
  - CONSTIPATION [None]
  - DYSPNOEA [None]
  - ECZEMA [None]
  - ELECTROCARDIOGRAM ABNORMAL [None]
  - HAEMORRHOIDS [None]
  - HEADACHE [None]
  - INCREASED APPETITE [None]
  - MYALGIA [None]
  - NASAL DRYNESS [None]
  - NECK PAIN [None]
  - PARAESTHESIA [None]
  - VISION BLURRED [None]
  - WEIGHT INCREASED [None]
